FAERS Safety Report 25216110 (Version 2)
Quarter: 2025Q2

REPORT INFORMATION
  Report Type: Spontaneous
  Country: US (occurrence: US)
  Receive Date: 20250418
  Receipt Date: 20250605
  Transmission Date: 20250717
  Serious: No
  Sender: ROCHE
  Company Number: US-ROCHE-10000254900

PATIENT
  Sex: Male
  Weight: 111.13 kg

DRUGS (2)
  1. PULMOZYME [Suspect]
     Active Substance: DORNASE ALFA
     Indication: Increased bronchial secretion
     Route: 065
     Dates: start: 2022
  2. PULMOZYME [Suspect]
     Active Substance: DORNASE ALFA
     Indication: Productive cough

REACTIONS (6)
  - Asthma [Unknown]
  - Bronchiectasis [Unknown]
  - Tracheomalacia [Unknown]
  - Immunodeficiency [Unknown]
  - Off label use [Unknown]
  - Cough [Unknown]
